FAERS Safety Report 8552618-2 (Version None)
Quarter: 2012Q3

REPORT INFORMATION
  Report Type: 
  Country: None (occurrence: None)
  Receive Date: 20120731
  Receipt Date: 20120726
  Transmission Date: 20120928
  Serious: Yes (Hospitalization)
  Sender: FDA-Public Use
  Company Number: US-PFIZER INC-2012181889

PATIENT
  Sex: Female

DRUGS (1)
  1. XALKORI [Suspect]
     Dosage: 250 MG, 2X/DAY

REACTIONS (3)
  - BACK PAIN [None]
  - CHEST PAIN [None]
  - OESOPHAGITIS [None]
